FAERS Safety Report 25199583 (Version 2)
Quarter: 2025Q3

REPORT INFORMATION
  Report Type: Spontaneous
  Country: EU (occurrence: EU)
  Receive Date: 20250415
  Receipt Date: 20250730
  Transmission Date: 20251021
  Serious: Yes (Other)
  Sender: ASCEND THERAPEUTICS US, LLC
  Company Number: EU-Ascend Therapeutics US, LLC-2174950

PATIENT
  Age: 9 Year
  Sex: Male

DRUGS (3)
  1. ESTROGEL [Suspect]
     Active Substance: ESTRADIOL
     Indication: Artificial menopause
     Dates: start: 20240923, end: 20250326
  2. ESTROGEL [Suspect]
     Active Substance: ESTRADIOL
     Dates: start: 20240923, end: 20250326
  3. ESTRADIOL [Suspect]
     Active Substance: ESTRADIOL
     Dates: start: 20230602, end: 20240922

REACTIONS (9)
  - Gynaecomastia [Not Recovered/Not Resolved]
  - Precocious puberty [Not Recovered/Not Resolved]
  - Oestradiol increased [Recovering/Resolving]
  - Epiphyses premature fusion [Not Recovered/Not Resolved]
  - Emotional distress [Not Recovered/Not Resolved]
  - Hypertrichosis [Not Recovered/Not Resolved]
  - Blood follicle stimulating hormone increased [Not Recovered/Not Resolved]
  - Blood luteinising hormone increased [Not Recovered/Not Resolved]
  - Accidental exposure to product by child [Not Recovered/Not Resolved]

NARRATIVE: CASE EVENT DATE: 20241209
